FAERS Safety Report 4353139-3 (Version None)
Quarter: 2004Q2

REPORT INFORMATION
  Report Type: 
  Country: None (occurrence: None)
  Receive Date: 20040429
  Receipt Date: 20040416
  Transmission Date: 20050107
  Serious: Yes (Death, Hospitalization, Other)
  Sender: FDA-Public Use
  Company Number: A-CH2002-00377

PATIENT
  Age: 47 Year
  Sex: Female
  Weight: 52 kg

DRUGS (10)
  1. TRACLEER [Suspect]
     Indication: PULMONARY HYPERTENSION
     Dosage: 125 MG, BID, ORAL; 62.5 MG, BID, ORAL
     Route: 048
     Dates: start: 20020612, end: 20020711
  2. TRACLEER [Suspect]
     Indication: PULMONARY HYPERTENSION
     Dosage: 125 MG, BID, ORAL; 62.5 MG, BID, ORAL
     Route: 048
     Dates: start: 20020712, end: 20020715
  3. ZAROXOLYN [Concomitant]
  4. LASIX [Concomitant]
  5. ALDACTONE [Concomitant]
  6. ZYLORIC ^GLAXO WELLCOME^ (ALLOPURINOL) [Concomitant]
  7. SINTROM [Concomitant]
  8. FOLVITE (FOLIC ACID) [Concomitant]
  9. POTASSIUM CHLORIDE [Concomitant]
  10. OXYGEN (OXYGEN) [Concomitant]

REACTIONS (31)
  - ABASIA [None]
  - ALCOHOLISM [None]
  - ASTERIXIS [None]
  - BLISTER [None]
  - BRADYPHRENIA [None]
  - CARDIAC FAILURE [None]
  - DELIRIUM TREMENS [None]
  - DEPRESSION [None]
  - DISORIENTATION [None]
  - DRUG HYPERSENSITIVITY [None]
  - EXANTHEM [None]
  - HALLUCINATION [None]
  - HYPOKALAEMIA [None]
  - IMPAIRED HEALING [None]
  - INFLUENZA LIKE ILLNESS [None]
  - LEUKOCYTOCLASTIC VASCULITIS [None]
  - OEDEMA PERIPHERAL [None]
  - OVERDOSE [None]
  - PAIN [None]
  - PAIN IN EXTREMITY [None]
  - PALMAR ERYTHEMA [None]
  - PERSONALITY CHANGE [None]
  - RASH PRURITIC [None]
  - REFUSAL OF TREATMENT BY PATIENT [None]
  - RENAL FAILURE ACUTE [None]
  - RIGHT VENTRICULAR FAILURE [None]
  - SKIN ULCER [None]
  - SPIDER NAEVUS [None]
  - TREATMENT NONCOMPLIANCE [None]
  - TYPE III IMMUNE COMPLEX MEDIATED REACTION [None]
  - ULCER HAEMORRHAGE [None]
